FAERS Safety Report 7043955-1 (Version None)
Quarter: 2010Q4

REPORT INFORMATION
  Report Type: 
  Country: None (occurrence: None)
  Receive Date: 20101008
  Receipt Date: 20101008
  Transmission Date: 20110411
  Serious: Yes (Death, Hospitalization, Other)
  Sender: FDA-Public Use
  Company Number: None

PATIENT
  Age: 82 Year
  Sex: Male
  Weight: 97.5234 kg

DRUGS (1)
  1. AMIODARONE HCL [Suspect]

REACTIONS (3)
  - DRUG PRESCRIBING ERROR [None]
  - INFLUENZA [None]
  - LUNG DISORDER [None]
